FAERS Safety Report 20539771 (Version 1)
Quarter: 2022Q1

REPORT INFORMATION
  Report Type: Spontaneous
  Country: ZA (occurrence: ZA)
  Receive Date: 20220302
  Receipt Date: 20220302
  Transmission Date: 20220423
  Serious: Yes (Death)
  Sender: FDA-Public Use
  Company Number: ZA-JNJFOC-20211056955

PATIENT
  Age: 1 Decade
  Sex: Female

DRUGS (1)
  1. VERMOX [Suspect]
     Active Substance: MEBENDAZOLE
     Indication: Product used for unknown indication
     Dosage: SINGLE DOSE OF VERMOX 500 MG
     Route: 065
     Dates: start: 2021

REACTIONS (1)
  - Death [Fatal]
